FAERS Safety Report 20177091 (Version 1)
Quarter: 2021Q4

REPORT INFORMATION
  Report Type: Spontaneous
  Country: US (occurrence: None)
  Receive Date: 20211211
  Receipt Date: 20211211
  Transmission Date: 20220303
  Serious: No
  Sender: FDA-Public Use
  Company Number: None

PATIENT
  Age: 61 Year
  Sex: Female

DRUGS (1)
  1. MYCHELLE DERMACEUTICALS SUN SHIELD SPF 50 LIGHT/MEDIUM PROTECT [Suspect]
     Active Substance: ZINC OXIDE
     Indication: Prophylaxis against solar radiation
     Route: 061
     Dates: start: 20210616, end: 20211209

REACTIONS (4)
  - Application site pain [None]
  - Application site erythema [None]
  - Application site pruritus [None]
  - Swelling face [None]

NARRATIVE: CASE EVENT DATE: 20211206
